FAERS Safety Report 9698530 (Version 2)
Quarter: 2013Q4

REPORT INFORMATION
  Report Type: Spontaneous
  Country: US (occurrence: US)
  Receive Date: 20131120
  Receipt Date: 20131219
  Transmission Date: 20140711
  Serious: Yes (Hospitalization)
  Sender: FDA-Public Use
  Company Number: US-GLAXOSMITHKLINE-A1049670A

PATIENT
  Age: 93 Year
  Sex: Female

DRUGS (7)
  1. PROMACTA [Suspect]
     Indication: IMMUNE THROMBOCYTOPENIC PURPURA
     Dosage: 50MG PER DAY
     Route: 048
     Dates: start: 20130626
  2. ALLEGRA [Concomitant]
  3. CALCIUM [Concomitant]
  4. SYMBICORT [Concomitant]
  5. TYLENOL [Concomitant]
  6. VITAMIN C [Concomitant]
  7. VITAMIN D [Concomitant]

REACTIONS (2)
  - Pneumonia [Recovering/Resolving]
  - Faeces discoloured [Recovering/Resolving]
